FAERS Safety Report 24845098 (Version 4)
Quarter: 2025Q1

REPORT INFORMATION
  Report Type: Spontaneous
  Country: RO (occurrence: RO)
  Receive Date: 20250115
  Receipt Date: 20250131
  Transmission Date: 20250409
  Serious: Yes (Life-Threatening, Hospitalization, Other)
  Sender: MYLAN
  Company Number: RO-Merck Healthcare KGaA-2024068701

PATIENT
  Age: 40 Year
  Sex: Male

DRUGS (3)
  1. METFORMIN [Suspect]
     Active Substance: METFORMIN HYDROCHLORIDE
     Indication: Type 2 diabetes mellitus
     Route: 065
  2. BISOPROLOL [Concomitant]
     Active Substance: BISOPROLOL
     Indication: Hypertension
     Route: 065
  3. RILMENIDINE [Concomitant]
     Active Substance: RILMENIDINE
     Indication: Hypertension
     Route: 065

REACTIONS (16)
  - Acute kidney injury [Unknown]
  - Hyperkalaemia [Unknown]
  - Cardiac arrest [Recovered/Resolved]
  - Campylobacter gastroenteritis [Unknown]
  - Dyskinesia [Recovered/Resolved]
  - Muscular weakness [Recovered/Resolved]
  - Hypotension [Recovered/Resolved]
  - Altered state of consciousness [Recovered/Resolved]
  - Hypoxia [Recovered/Resolved]
  - Agitation [Recovered/Resolved]
  - Respiratory disorder [Recovered/Resolved]
  - Pallor [Recovered/Resolved]
  - Peripheral coldness [Recovered/Resolved]
  - Bradycardia [Recovered/Resolved]
  - Renal impairment [Unknown]
  - Lactic acidosis [Unknown]
